FAERS Safety Report 10237782 (Version 1)
Quarter: 2014Q2

REPORT INFORMATION
  Report Type: Spontaneous
  Country: US (occurrence: None)
  Receive Date: 20140612
  Receipt Date: 20140612
  Transmission Date: 20141212
  Serious: No
  Sender: FDA-Public Use
  Company Number: None

PATIENT
  Age: 65 Year
  Sex: Male
  Weight: 95.71 kg

DRUGS (2)
  1. BICALUTAMID(CASODEX) [Suspect]
  2. LEUPROLIDE ACETATE [Suspect]

REACTIONS (4)
  - Melaena [None]
  - Haematemesis [None]
  - Oesophagitis [None]
  - Mallory-Weiss syndrome [None]
